FAERS Safety Report 15487497 (Version 1)
Quarter: 2018Q4

REPORT INFORMATION
  Report Type: Spontaneous
  Country: US (occurrence: US)
  Receive Date: 20181003
  Receipt Date: 20181003
  Transmission Date: 20190205
  Serious: Yes (Hospitalization)
  Sender: FDA-Public Use
  Company Number: None

PATIENT
  Age: 68 Year
  Sex: Male
  Weight: 113 kg

DRUGS (1)
  1. RIVAROXABAN [Suspect]
     Active Substance: RIVAROXABAN
     Indication: DEEP VEIN THROMBOSIS
     Route: 048
     Dates: start: 20180820, end: 20180909

REACTIONS (4)
  - Renal haemorrhage [None]
  - Acute kidney injury [None]
  - Urinary bladder haemorrhage [None]
  - Nephrolithiasis [None]

NARRATIVE: CASE EVENT DATE: 20180909
